FAERS Safety Report 5109305-2 (Version None)
Quarter: 2006Q3

REPORT INFORMATION
  Report Type: 
  Country: None (occurrence: None)
  Receive Date: 20060920
  Receipt Date: 20060918
  Transmission Date: 20061208
  Serious: Yes (Other)
  Sender: FDA-Public Use
  Company Number: CA-GLAXOSMITHKLINE-A0620718A

PATIENT
  Age: 59 Year
  Sex: Male

DRUGS (2)
  1. ADVAIR DISKUS 100/50 [Suspect]
     Indication: COUGH
     Dosage: 1PUFF TWICE PER DAY
     Route: 055
     Dates: start: 20060915
  2. VENTOLIN [Suspect]
     Indication: COUGH
     Route: 055
     Dates: start: 20060915

REACTIONS (1)
  - EYE HAEMORRHAGE [None]
